FAERS Safety Report 15421498 (Version 1)
Quarter: 2018Q3

REPORT INFORMATION
  Report Type: Report from Study
  Country: PL (occurrence: PL)
  Receive Date: 20180924
  Receipt Date: 20180924
  Transmission Date: 20181010
  Serious: Yes (Hospitalization, Other)
  Sender: FDA-Public Use
  Company Number: PL-ACTELION-A-US2018-179299

PATIENT
  Sex: Male

DRUGS (1)
  1. VENTAVIS [Suspect]
     Active Substance: ILOPROST
     Indication: PULMONARY ARTERIAL HYPERTENSION
     Dosage: 8 INHALATIONS PER 5 MCG
     Route: 055
     Dates: start: 20171215

REACTIONS (6)
  - Asthenia [Unknown]
  - Malaise [Unknown]
  - Exercise tolerance decreased [Unknown]
  - Hospitalisation [Unknown]
  - Peripheral swelling [Unknown]
  - Dyspnoea [Unknown]
